FAERS Safety Report 4654921-5 (Version None)
Quarter: 2005Q2

REPORT INFORMATION
  Report Type: 
  Country: None (occurrence: None)
  Receive Date: 20050506
  Receipt Date: 20040929
  Transmission Date: 20051028
  Serious: No
  Sender: FDA-Public Use
  Company Number: A0528238A

PATIENT
  Sex: Male

DRUGS (1)
  1. AMOXIL [Suspect]
     Indication: DRUG USE FOR UNKNOWN INDICATION
     Route: 048

REACTIONS (1)
  - RASH MACULAR [None]
